FAERS Safety Report 7707091-0 (Version None)
Quarter: 2011Q3

REPORT INFORMATION
  Report Type: 
  Country: None (occurrence: None)
  Receive Date: 20110824
  Receipt Date: 20110818
  Transmission Date: 20111222
  Serious: Yes (Other)
  Sender: FDA-Public Use
  Company Number: US-PFIZER INC-2007036570

PATIENT
  Sex: Male

DRUGS (1)
  1. NEURONTIN [Suspect]
     Indication: BACK INJURY
     Dosage: 300 MG, UNK
     Dates: start: 20030501, end: 20030101

REACTIONS (7)
  - SOMNOLENCE [None]
  - THINKING ABNORMAL [None]
  - OROPHARYNGEAL PAIN [None]
  - BACK PAIN [None]
  - AFFECT LABILITY [None]
  - SUICIDAL IDEATION [None]
  - NERVOUSNESS [None]
